FAERS Safety Report 12222456 (Version 3)
Quarter: 2016Q2

REPORT INFORMATION
  Report Type: Spontaneous
  Country: US (occurrence: US)
  Receive Date: 20160330
  Receipt Date: 20160420
  Transmission Date: 20160815
  Serious: Yes (Death, Other)
  Sender: FDA-Public Use
  Company Number: US-B.I. PHARMACEUTICALS,INC./RIDGEFIELD-2016-BI-17693BI

PATIENT
  Age: 44 Year
  Sex: Female

DRUGS (9)
  1. MOBIC [Suspect]
     Active Substance: MELOXICAM
     Indication: MIGRAINE
     Dosage: 15 MG
     Route: 065
     Dates: end: 200907
  2. CELEXA [Suspect]
     Active Substance: CITALOPRAM HYDROBROMIDE
     Dosage: 60 MG
     Route: 065
  3. DIVALPROEX [Concomitant]
     Active Substance: DIVALPROEX SODIUM
     Indication: MIGRAINE
     Dosage: 250 MG
     Route: 065
     Dates: start: 200907
  4. CELEXA [Suspect]
     Active Substance: CITALOPRAM HYDROBROMIDE
     Indication: DEPRESSION
     Dosage: 40 MG
     Route: 065
  5. DIVALPROEX [Concomitant]
     Active Substance: DIVALPROEX SODIUM
     Dosage: 1000 MG
     Route: 065
     Dates: start: 201101
  6. DIVALPROEX [Concomitant]
     Active Substance: DIVALPROEX SODIUM
     Dosage: 500 MG
     Route: 065
     Dates: start: 2010
  7. BUSCO IBUPROFEN [Suspect]
     Active Substance: IBUPROFEN
     Indication: PRODUCT USED FOR UNKNOWN INDICATION
     Route: 065
  8. NADOLOL. [Concomitant]
     Active Substance: NADOLOL
     Indication: HYPERTENSION
     Dosage: 40 MG
     Route: 065
  9. BUPROPION. [Concomitant]
     Active Substance: BUPROPION
     Indication: PRODUCT USED FOR UNKNOWN INDICATION
     Dosage: 200 MG
     Route: 065
     Dates: end: 201101

REACTIONS (6)
  - Ventricular fibrillation [Fatal]
  - Toxicity to various agents [Unknown]
  - Torsade de pointes [Fatal]
  - Arrhythmia [Fatal]
  - Liver injury [Unknown]
  - Long QT syndrome [Fatal]

NARRATIVE: CASE EVENT DATE: 20110505
